FAERS Safety Report 7825586-6 (Version None)
Quarter: 2011Q4

REPORT INFORMATION
  Report Type: 
  Country: None (occurrence: None)
  Receive Date: 20111019
  Receipt Date: 20111005
  Transmission Date: 20120403
  Serious: Yes (Other)
  Sender: FDA-Public Use
  Company Number: US-BAXTER-2010BH001595

PATIENT
  Age: 27 Year
  Sex: Female
  Weight: 53 kg

DRUGS (48)
  1. HEPARIN SODIUM INJECTION [Suspect]
     Route: 042
     Dates: start: 20070904, end: 20071107
  2. HEPARIN SODIUM INJECTION [Suspect]
     Route: 042
     Dates: start: 20070904, end: 20071107
  3. HEPARIN SODIUM INJECTION [Suspect]
     Route: 040
     Dates: start: 20091005, end: 20091005
  4. HEPARIN SODIUM INJECTION [Suspect]
     Route: 040
     Dates: start: 20070928
  5. CLONIDINE [Suspect]
     Indication: PRODUCT USED FOR UNKNOWN INDICATION
     Route: 065
  6. MINOXIDIL [Suspect]
     Indication: PRODUCT USED FOR UNKNOWN INDICATION
     Route: 065
  7. HEPARIN SODIUM INJECTION [Suspect]
     Indication: CENTRAL VENOUS CATHETERISATION
     Route: 065
     Dates: start: 20070830
  8. HEPARIN SODIUM INJECTION [Suspect]
     Route: 042
     Dates: start: 20071102, end: 20100630
  9. HEPARIN SODIUM INJECTION [Suspect]
     Route: 010
     Dates: start: 20090812, end: 20090812
  10. HEPARIN SODIUM INJECTION [Suspect]
     Route: 050
     Dates: start: 20070928
  11. HEPARIN SODIUM INJECTION [Suspect]
     Route: 042
     Dates: start: 20091007, end: 20091007
  12. HEPARIN SODIUM INJECTION [Suspect]
     Route: 042
     Dates: start: 20080402, end: 20080901
  13. HEPARIN SODIUM INJECTION [Suspect]
     Route: 040
     Dates: start: 20071005, end: 20080130
  14. NIFEDIPINE [Concomitant]
     Indication: PRODUCT USED FOR UNKNOWN INDICATION
     Route: 048
  15. HEPARIN SODIUM INJECTION [Suspect]
     Route: 042
     Dates: start: 20071102, end: 20100630
  16. HEPARIN SODIUM INJECTION [Suspect]
     Route: 010
     Dates: start: 20090812, end: 20090812
  17. HEPARIN SODIUM INJECTION [Suspect]
     Route: 042
     Dates: start: 20080331
  18. HEPARIN SODIUM 1,000 UNITS AND SODIUM CHLORIDE 0.9% [Suspect]
     Route: 042
  19. LISINOPRIL [Concomitant]
     Indication: PRODUCT USED FOR UNKNOWN INDICATION
     Route: 048
  20. METOPROLOL TARTRATE [Concomitant]
     Indication: PRODUCT USED FOR UNKNOWN INDICATION
     Route: 048
  21. SERTRALINE HYDROCHLORIDE [Concomitant]
     Indication: PRODUCT USED FOR UNKNOWN INDICATION
     Route: 048
  22. PHENERGAN HCL [Concomitant]
     Indication: PRODUCT USED FOR UNKNOWN INDICATION
     Route: 061
  23. HEPARIN SODIUM INJECTION [Suspect]
     Route: 010
     Dates: start: 20070926
  24. HEPARIN SODIUM INJECTION [Suspect]
     Route: 010
     Dates: start: 20070926
  25. HEPARIN SODIUM INJECTION [Suspect]
     Route: 040
     Dates: start: 20070926
  26. HEPARIN SODIUM INJECTION [Suspect]
     Route: 050
     Dates: start: 20070928
  27. HEPARIN SODIUM INJECTION [Suspect]
     Route: 042
     Dates: start: 20080331
  28. HEPARIN SODIUM INJECTION [Suspect]
     Route: 010
     Dates: start: 20071005, end: 20080130
  29. HEPARIN SODIUM INJECTION [Suspect]
     Route: 040
     Dates: start: 20071005, end: 20080130
  30. KENALOG [Concomitant]
     Indication: PRODUCT USED FOR UNKNOWN INDICATION
     Route: 031
     Dates: start: 20050819
  31. LANTUS [Concomitant]
     Indication: PRODUCT USED FOR UNKNOWN INDICATION
     Route: 065
  32. FOSRENOL [Concomitant]
     Indication: PRODUCT USED FOR UNKNOWN INDICATION
     Route: 065
  33. HEPARIN SODIUM INJECTION [Suspect]
     Indication: HAEMODIALYSIS
     Route: 065
     Dates: start: 20070830
  34. HEPARIN SODIUM INJECTION [Suspect]
     Route: 040
     Dates: start: 20091005, end: 20091005
  35. HEPARIN SODIUM INJECTION [Suspect]
     Route: 042
     Dates: start: 20091007, end: 20091007
  36. HEPARIN SODIUM INJECTION [Suspect]
     Route: 040
     Dates: start: 20070928
  37. PROMETHAZINE [Concomitant]
     Indication: PRODUCT USED FOR UNKNOWN INDICATION
     Route: 048
  38. HEPARIN SODIUM INJECTION [Suspect]
     Route: 042
     Dates: start: 20070904, end: 20080326
  39. HEPARIN SODIUM INJECTION [Suspect]
     Route: 010
     Dates: start: 20070928
  40. HEPARIN SODIUM INJECTION [Suspect]
     Route: 042
     Dates: start: 20080402, end: 20080901
  41. HEPARIN SODIUM INJECTION [Suspect]
     Route: 010
     Dates: start: 20071005, end: 20080130
  42. LIPITOR [Concomitant]
     Indication: PRODUCT USED FOR UNKNOWN INDICATION
     Route: 048
  43. HEPARIN SODIUM INJECTION [Suspect]
     Route: 042
     Dates: start: 20070904, end: 20080326
  44. HEPARIN SODIUM INJECTION [Suspect]
     Route: 040
     Dates: start: 20070926
  45. HEPARIN SODIUM INJECTION [Suspect]
     Route: 010
     Dates: start: 20070928
  46. HEPARIN SODIUM INJECTION [Suspect]
     Route: 042
     Dates: start: 20070901
  47. HEPARIN SODIUM INJECTION [Suspect]
     Route: 042
     Dates: start: 20070901
  48. INSULIN LISPRO [Concomitant]
     Indication: PRODUCT USED FOR UNKNOWN INDICATION
     Route: 065

REACTIONS (33)
  - HYPERTENSIVE EMERGENCY [None]
  - PULMONARY OEDEMA [None]
  - ANXIETY [None]
  - HYPERHIDROSIS [None]
  - HEADACHE [None]
  - ABDOMINAL PAIN [None]
  - NAUSEA [None]
  - RENAL FAILURE ACUTE [None]
  - DIZZINESS [None]
  - VOMITING [None]
  - PLATELET COUNT DECREASED [None]
  - HYPERPARATHYROIDISM [None]
  - FEAR [None]
  - MYOCARDIAL INFARCTION [None]
  - CARDIO-RESPIRATORY ARREST [None]
  - CHEST PAIN [None]
  - RESPIRATORY FAILURE [None]
  - DYSURIA [None]
  - SPLENIC RUPTURE [None]
  - HYPOTENSION [None]
  - STRESS [None]
  - CEREBROVASCULAR ACCIDENT [None]
  - CONVULSION [None]
  - VASCULAR GRAFT THROMBOSIS [None]
  - COAGULOPATHY [None]
  - HYPERKALAEMIA [None]
  - HUNGRY BONE SYNDROME [None]
  - BLOOD PRESSURE FLUCTUATION [None]
  - DEPRESSION [None]
  - HYPOAESTHESIA [None]
  - HALLUCINATION, VISUAL [None]
  - MALAISE [None]
  - MUSCULAR WEAKNESS [None]
